FAERS Safety Report 22807709 (Version 3)
Quarter: 2023Q4

REPORT INFORMATION
  Report Type: Spontaneous
  Country: ES (occurrence: ES)
  Receive Date: 20230810
  Receipt Date: 20231004
  Transmission Date: 20240110
  Serious: Yes (Life-Threatening, Hospitalization, Other)
  Sender: FDA-Public Use
  Company Number: ES-MLMSERVICE-20230725-4428187-1

PATIENT
  Age: 54 Year
  Sex: Female

DRUGS (3)
  1. FLECAINIDE [Suspect]
     Active Substance: FLECAINIDE
     Indication: Suicide attempt
     Dosage: 50 MILLIGRAM, TWO TIMES A DAY
     Route: 048
  2. FLECAINIDE [Suspect]
     Active Substance: FLECAINIDE
     Indication: Wolff-Parkinson-White syndrome
     Dosage: UNK (UNKNOWN DOSE WITH AUTOLYTIC ATTEMPT)
     Route: 065
  3. DIAZEPAM [Suspect]
     Active Substance: DIAZEPAM
     Indication: Product used for unknown indication
     Dosage: UNK (UNKNOWN DOSE WITH AUTOLYTIC ATTEMPT)
     Route: 065

REACTIONS (13)
  - Altered state of consciousness [Recovered/Resolved]
  - Atrial fibrillation [Recovered/Resolved]
  - Brugada syndrome [Recovered/Resolved]
  - Cardiogenic shock [Recovered/Resolved]
  - Electrocardiogram QT prolonged [Recovered/Resolved]
  - Electrocardiogram QRS complex prolonged [Recovered/Resolved]
  - Mental status changes [Recovered/Resolved]
  - Toxicity to various agents [Recovered/Resolved]
  - Intentional overdose [Recovered/Resolved]
  - Suicide attempt [Recovered/Resolved]
  - Heart rate decreased [Recovered/Resolved]
  - Cognitive disorder [Recovered/Resolved]
  - Blood pressure decreased [Recovered/Resolved]
